FAERS Safety Report 22399487 (Version 1)
Quarter: 2023Q2

REPORT INFORMATION
  Report Type: Spontaneous
  Country: DE (occurrence: None)
  Receive Date: 20230602
  Receipt Date: 20230602
  Transmission Date: 20230722
  Serious: Yes (Other)
  Sender: FDA-Public Use
  Company Number: 2023A120333

PATIENT
  Age: 65 Year
  Sex: Female

DRUGS (16)
  1. DAPAGLIFLOZIN [Suspect]
     Active Substance: DAPAGLIFLOZIN
     Indication: Diabetes mellitus
     Dosage: 1-0-0-0, 10 MG DAILY
     Route: 048
     Dates: start: 20230428, end: 202305
  2. DAPAGLIFLOZIN [Suspect]
     Active Substance: DAPAGLIFLOZIN
     Indication: Cardiac failure
     Dosage: 1-0-0-0, 10 MG DAILY
     Route: 048
     Dates: start: 20230428, end: 202305
  3. MOXONIDINE [Concomitant]
     Active Substance: MOXONIDINE
     Dosage: FOR A LONG TIME
  4. OMEPRAZOLE [Concomitant]
     Active Substance: OMEPRAZOLE
     Dosage: FOR A LONG TIME
  5. CANDESARTAN [Concomitant]
     Active Substance: CANDESARTAN
     Dosage: FOR A LONG TIME
  6. BENSERAZIDE\LEVODOPA [Concomitant]
     Active Substance: BENSERAZIDE\LEVODOPA
     Dosage: FOR A LONG TIME
  7. METFORMIN [Concomitant]
     Active Substance: METFORMIN HYDROCHLORIDE
     Dosage: FOR A LONG TIME
  8. SPIRONOLACTONE [Concomitant]
     Active Substance: SPIRONOLACTONE
     Dosage: FOR A LONG TIME
  9. FENTANYL [Concomitant]
     Active Substance: FENTANYL
     Dosage: FOR A LONG TIME
  10. APIXABAN [Concomitant]
     Active Substance: APIXABAN
     Dosage: FOR A LONG TIME
  11. BISOPROLOL [Concomitant]
     Active Substance: BISOPROLOL
     Dosage: FOR A LONG TIME
  12. METILDIGOXIN [Concomitant]
     Active Substance: METILDIGOXIN
     Dosage: FOR A LONG TIME
  13. SIMVASTATIN [Concomitant]
     Active Substance: SIMVASTATIN
     Dosage: FOR A LONG TIME
  14. VENLAFAXINE HYDROCHLORIDE [Concomitant]
     Active Substance: VENLAFAXINE HYDROCHLORIDE
     Dosage: FOR A LONG TIME
  15. AMLODIPINE BESYLATE [Concomitant]
     Active Substance: AMLODIPINE BESYLATE
     Dosage: FOR A LONG TIME
  16. TRULICITY [Concomitant]
     Active Substance: DULAGLUTIDE
     Dosage: FOR A LONG TIME

REACTIONS (4)
  - Ulcer haemorrhage [Not Recovered/Not Resolved]
  - Vulvovaginal pain [Not Recovered/Not Resolved]
  - Vulvovaginal inflammation [Not Recovered/Not Resolved]
  - Cystitis [Not Recovered/Not Resolved]

NARRATIVE: CASE EVENT DATE: 20230501
